FAERS Safety Report 9688577 (Version 2)
Quarter: 2013Q4

REPORT INFORMATION
  Report Type: Spontaneous
  Country: HU (occurrence: HU)
  Receive Date: 20131114
  Receipt Date: 20131114
  Transmission Date: 20140711
  Serious: Yes (Other)
  Sender: FDA-Public Use
  Company Number: HU-PFIZER INC-2013297059

PATIENT
  Age: 65 Year
  Sex: Male

DRUGS (1)
  1. SUTENT [Suspect]
     Indication: RENAL CELL CARCINOMA
     Dosage: 50 MG, 1X/DAY (2 WEEKS TAKING, 1 WEEK BREAK)
     Route: 048
     Dates: start: 20130702

REACTIONS (15)
  - Neutropenia [Unknown]
  - Leukopenia [Unknown]
  - Choking [Unknown]
  - Ejection fraction decreased [Unknown]
  - Dysphagia [Unknown]
  - Stomatitis [Unknown]
  - Dysgeusia [Unknown]
  - Weight decreased [Unknown]
  - Fatigue [Unknown]
  - General physical health deterioration [Unknown]
  - Palmar-plantar erythrodysaesthesia syndrome [Unknown]
  - Skin discolouration [Unknown]
  - Blood thyroid stimulating hormone increased [Unknown]
  - Thyroxine decreased [Unknown]
  - Asthenia [Unknown]
